FAERS Safety Report 16863115 (Version 1)
Quarter: 2019Q3

REPORT INFORMATION
  Report Type: Spontaneous
  Country: US (occurrence: US)
  Receive Date: 20190927
  Receipt Date: 20190927
  Transmission Date: 20191005
  Serious: Yes (Life-Threatening, Hospitalization, Other)
  Sender: FDA-Public Use
  Company Number: US-MYLANLABS-2019M1089528

PATIENT
  Age: 78 Year
  Sex: Female

DRUGS (12)
  1. PROPOFOL. [Suspect]
     Active Substance: PROPOFOL
     Indication: STATUS EPILEPTICUS
     Route: 065
  2. TRANEXAMIC ACID. [Suspect]
     Active Substance: TRANEXAMIC ACID
     Indication: SPINAL ANAESTHESIA
     Route: 037
  3. LEVETIRACETAM. [Suspect]
     Active Substance: LEVETIRACETAM
     Indication: MYOCLONIC EPILEPSY
  4. LORAZEPAM. [Suspect]
     Active Substance: LORAZEPAM
     Indication: MYOCLONIC EPILEPSY
  5. PROPOFOL. [Suspect]
     Active Substance: PROPOFOL
     Indication: MYOCLONIC EPILEPSY
  6. FOSPHENYTOIN [Suspect]
     Active Substance: FOSPHENYTOIN
     Indication: MYOCLONIC EPILEPSY
  7. LORAZEPAM. [Suspect]
     Active Substance: LORAZEPAM
     Indication: STATUS EPILEPTICUS
     Route: 065
  8. FOSPHENYTOIN [Suspect]
     Active Substance: FOSPHENYTOIN
     Indication: STATUS EPILEPTICUS
     Route: 065
  9. LEVETIRACETAM. [Suspect]
     Active Substance: LEVETIRACETAM
     Indication: STATUS EPILEPTICUS
     Route: 065
  10. PHENOBARBITAL. [Suspect]
     Active Substance: PHENOBARBITAL
     Indication: STATUS EPILEPTICUS
     Route: 065
  11. BUPIVACAINE. [Suspect]
     Active Substance: BUPIVACAINE
     Indication: SPINAL ANAESTHESIA
     Dosage: WAS SCHEDULED TO BE ADMINISTERED INTRATHECALLY
     Route: 037
  12. PHENOBARBITAL. [Suspect]
     Active Substance: PHENOBARBITAL
     Indication: MYOCLONIC EPILEPSY

REACTIONS (6)
  - Status epilepticus [Recovering/Resolving]
  - Product appearance confusion [Recovering/Resolving]
  - Myoclonic epilepsy [Recovering/Resolving]
  - Wrong product administered [Recovering/Resolving]
  - Incorrect route of product administration [Recovering/Resolving]
  - Drug ineffective [Unknown]
